FAERS Safety Report 6125418-0 (Version None)
Quarter: 2009Q1

REPORT INFORMATION
  Report Type: 
  Country: None (occurrence: None)
  Receive Date: 20090319
  Receipt Date: 20090319
  Transmission Date: 20090719
  Serious: No
  Sender: FDA-Public Use
  Company Number: None

PATIENT
  Age: 31 Year
  Sex: Female
  Weight: 72.1219 kg

DRUGS (1)
  1. MIRENA [Suspect]
     Indication: CONTRACEPTION
     Dosage: 52 MG OF LOVENORGESTREL EVERY 5 YEARS INTRACERVICAL
     Route: 019
     Dates: start: 20090106, end: 20090106

REACTIONS (5)
  - CERVIX HAEMORRHAGE UTERINE [None]
  - DEVICE FAILURE [None]
  - IATROGENIC INJURY [None]
  - PROCEDURAL COMPLICATION [None]
  - UTERINE CERVICAL LACERATION [None]
